FAERS Safety Report 10413114 (Version 8)
Quarter: 2016Q1

REPORT INFORMATION
  Report Type: Report from Study
  Country: US (occurrence: US)
  Receive Date: 20140827
  Receipt Date: 20160229
  Transmission Date: 20160525
  Serious: Yes (Hospitalization, Other)
  Sender: FDA-Public Use
  Company Number: US-SA-2014SA075258

PATIENT
  Age: 59 Year
  Sex: Female

DRUGS (5)
  1. BACTRIM [Concomitant]
     Active Substance: SULFAMETHOXAZOLE\TRIMETHOPRIM
     Indication: MULTIPLE SCLEROSIS
     Dates: start: 20010101
  2. PREDNISONE. [Concomitant]
     Active Substance: PREDNISONE
  3. AUBAGIO [Suspect]
     Active Substance: TERIFLUNOMIDE
     Indication: MULTIPLE SCLEROSIS
     Route: 048
     Dates: start: 20140506
  4. SOLU-MEDROL [Concomitant]
     Active Substance: METHYLPREDNISOLONE SODIUM SUCCINATE
  5. AUBAGIO [Suspect]
     Active Substance: TERIFLUNOMIDE
     Indication: MULTIPLE SCLEROSIS
     Route: 048
     Dates: start: 20141121, end: 20151217

REACTIONS (30)
  - Nerve compression [Unknown]
  - Depression [Unknown]
  - Fatigue [Unknown]
  - Spinal pain [Not Recovered/Not Resolved]
  - Muscle spasms [Not Recovered/Not Resolved]
  - Musculoskeletal pain [Not Recovered/Not Resolved]
  - Aphasia [Unknown]
  - Small cell lung cancer [Not Recovered/Not Resolved]
  - Feeling abnormal [Unknown]
  - Anxiety [Unknown]
  - Hypokinesia [Unknown]
  - Neck pain [Not Recovered/Not Resolved]
  - Insomnia [Unknown]
  - Intracranial aneurysm [Unknown]
  - Fall [Recovering/Resolving]
  - Back pain [Not Recovered/Not Resolved]
  - Balance disorder [Unknown]
  - Dyspnoea [Unknown]
  - Functional gastrointestinal disorder [Unknown]
  - Hemiparesis [Unknown]
  - Seizure [Unknown]
  - Panic attack [Unknown]
  - Tooth loss [Unknown]
  - Renal disorder [Unknown]
  - Brain neoplasm malignant [Recovered/Resolved]
  - Gait disturbance [Unknown]
  - Spinal column stenosis [Unknown]
  - Feeling abnormal [Recovering/Resolving]
  - Bladder disorder [Unknown]
  - Dizziness [Unknown]

NARRATIVE: CASE EVENT DATE: 201407
